FAERS Safety Report 21348279 (Version 1)
Quarter: 2022Q3

REPORT INFORMATION
  Report Type: Spontaneous
  Country: FR (occurrence: FR)
  Receive Date: 20220919
  Receipt Date: 20220919
  Transmission Date: 20221027
  Serious: Yes (Other)
  Sender: FDA-Public Use
  Company Number: FR-ROCHE-3171267

PATIENT
  Age: 76 Year
  Sex: Female
  Weight: 72.6 kg

DRUGS (5)
  1. CARBOPLATIN [Suspect]
     Active Substance: CARBOPLATIN
     Indication: Malignant peritoneal neoplasm
     Dosage: UNK (AUC 5, ON 09/AUG/2022, THE LAST DOSE OF CARBOPLATIN WAS ADMINSTERED)
     Route: 042
     Dates: start: 20211203, end: 20220809
  2. DOXORUBICIN [Suspect]
     Active Substance: DOXORUBICIN
     Indication: Malignant peritoneal neoplasm
     Dosage: 30 MILLIGRAM/KILOGRAM (AUC 5, ON 09/AUG/2022, THE LAST DOSE OF CARBOPLATIN WAS ADMINSTERED)
     Route: 042
     Dates: start: 20211203, end: 20220809
  3. ATEZOLIZUMAB [Suspect]
     Active Substance: ATEZOLIZUMAB
     Indication: Malignant peritoneal neoplasm
     Dosage: UNK (ON 22/AUG/2022, THE LAST DOSE OF ATEZOLIZUMAB WAS ADMINISTERED.)
     Route: 042
     Dates: start: 20211203, end: 20220822
  4. NIRAPARIB [Concomitant]
     Active Substance: NIRAPARIB
     Indication: Product used for unknown indication
     Dosage: 100 MILLIGRAM, ONCE A DAY
     Route: 065
     Dates: start: 20220822
  5. NIRAPARIB [Concomitant]
     Active Substance: NIRAPARIB
     Dosage: 200 MILLIGRAM, ONCE A DAY
     Route: 065
     Dates: start: 20220708, end: 20220803

REACTIONS (1)
  - Hypothyroidism [Not Recovered/Not Resolved]

NARRATIVE: CASE EVENT DATE: 20220608
